FAERS Safety Report 9891737 (Version 1)
Quarter: 2014Q1

REPORT INFORMATION
  Report Type: Spontaneous
  Country: BR (occurrence: BR)
  Receive Date: 20140212
  Receipt Date: 20140212
  Transmission Date: 20141002
  Serious: Yes (Other)
  Sender: FDA-Public Use
  Company Number: PHHY2014BR015716

PATIENT
  Age: 58 Year
  Sex: Female
  Weight: 59 kg

DRUGS (6)
  1. VOLTAREN [Suspect]
     Indication: HYPOTONIA
     Dosage: 1 DF, UNK
     Route: 030
  2. DORFLEX [Suspect]
     Indication: HYPOTONIA
     Dosage: UNK UKN, UNK
     Route: 048
  3. BIOFENAC//DICLOFENAC SODIUM [Suspect]
     Indication: HYPOTONIA
     Dosage: UNK UKN, UNK
     Route: 048
  4. SERTRALINE [Concomitant]
     Indication: DEPRESSION
     Dosage: UNK UKN, UNK
  5. CITTA [Concomitant]
     Indication: DEPRESSION
     Dosage: 20 MG, UNK
  6. CYMBALTA [Concomitant]
     Indication: DEPRESSION
     Dosage: 1 DF, QD
     Route: 048

REACTIONS (7)
  - Fibromyalgia [Recovered/Resolved]
  - Bursitis [Recovered/Resolved]
  - Intervertebral disc protrusion [Recovered/Resolved]
  - Blood cholesterol increased [Not Recovered/Not Resolved]
  - Sensory disturbance [Recovered/Resolved]
  - Hypertension [Recovered/Resolved]
  - Pain [Unknown]
